FAERS Safety Report 9343721 (Version 3)
Quarter: 2014Q2

REPORT INFORMATION
  Report Type: Spontaneous
  Country: IE (occurrence: IE)
  Receive Date: 20130612
  Receipt Date: 20140408
  Transmission Date: 20141212
  Serious: Yes (Death, Other)
  Sender: FDA-Public Use
  Company Number: PHFR2013IE003360

PATIENT
  Age: 65 Year
  Sex: Male

DRUGS (9)
  1. CLOZARIL [Suspect]
     Indication: SCHIZOPHRENIA
     Dosage: UNK
     Route: 048
     Dates: start: 20101007
  2. CLOZARIL [Suspect]
     Dosage: 350 MG, DAILY
     Route: 048
  3. SODIUM VALPROATE [Concomitant]
     Indication: EPILEPSY
     Dosage: 240 MG, UNK
     Route: 048
  4. CLONAZEPAM [Concomitant]
     Indication: AGITATION
     Dosage: 0.5 MG, UNK
     Route: 048
  5. ZOPICLONE [Concomitant]
     Indication: INSOMNIA
     Dosage: 3.7 MG, UNK
     Route: 048
  6. OSTEOFOS [Concomitant]
     Indication: OSTEOPENIA
     Dosage: UNK UKN, UNK
     Route: 048
  7. ENOXAPARIN [Concomitant]
     Indication: DEEP VEIN THROMBOSIS
     Dosage: 40 MG, UNK
     Route: 048
  8. IPRATROPIUM BROMIDE [Concomitant]
     Indication: CHRONIC OBSTRUCTIVE PULMONARY DISEASE
     Dosage: 1 DF, (500 MCG QDS)
     Route: 055
  9. BUDESONIDE [Concomitant]
     Indication: CHRONIC OBSTRUCTIVE PULMONARY DISEASE
     Dosage: 1 DF, BID
     Route: 048

REACTIONS (4)
  - Pneumonia aspiration [Fatal]
  - C-reactive protein increased [Unknown]
  - Pulmonary oedema [Unknown]
  - Carcinoembryonic antigen increased [Unknown]
